FAERS Safety Report 11603991 (Version 1)
Quarter: 2015Q4

REPORT INFORMATION
  Report Type: Spontaneous
  Country: US (occurrence: US)
  Receive Date: 20151007
  Receipt Date: 20151007
  Transmission Date: 20160304
  Serious: Yes (Hospitalization)
  Sender: FDA-Public Use
  Company Number: US-MYLANLABS-2015M1033100

PATIENT
  Age: 37 Year
  Sex: Female

DRUGS (1)
  1. LIDOCAINE. [Suspect]
     Active Substance: LIDOCAINE
     Indication: LIPOSUCTION
     Dosage: 1L OF 0.1%

REACTIONS (4)
  - Agitation [Recovered/Resolved]
  - Delusion [Recovered/Resolved]
  - Toxicity to various agents [Recovered/Resolved]
  - Restlessness [Recovered/Resolved]
